FAERS Safety Report 6795341-7 (Version None)
Quarter: 2010Q2

REPORT INFORMATION
  Report Type: 
  Country: None (occurrence: None)
  Receive Date: 20100625
  Receipt Date: 20100616
  Transmission Date: 20101027
  Serious: Yes (Other)
  Sender: FDA-Public Use
  Company Number: US-ASTRAZENECA-2010SE28189

PATIENT
  Age: 58 Year
  Sex: Female
  Weight: 97.5 kg

DRUGS (15)
  1. CRESTOR [Suspect]
     Indication: BLOOD CHOLESTEROL INCREASED
     Route: 048
     Dates: start: 20100501, end: 20100525
  2. LIPITOR [Suspect]
     Indication: BLOOD CHOLESTEROL INCREASED
     Route: 048
     Dates: start: 20100529
  3. GLUCOSAMINE HYDROCHOLORIDE/CHONDROITIN SULFATE [Concomitant]
  4. ASTELIN [Concomitant]
     Route: 045
  5. RISPERIDONE [Concomitant]
  6. CLONAZEPAM [Concomitant]
  7. CARBAMAZEPINE [Concomitant]
  8. BENZAPRINE [Concomitant]
  9. ENALAPRIL MALEATE [Concomitant]
  10. HYDROCHLOROTHIAZIDE [Concomitant]
  11. ATENOLOL [Concomitant]
  12. LEVOTHYROXINE SODIUM [Concomitant]
  13. CALCIUM CARBONATE [Concomitant]
  14. MULTI-VITAMINS [Concomitant]
  15. ACETYLSALICYLIC ACID [Concomitant]

REACTIONS (7)
  - ABDOMINAL DISCOMFORT [None]
  - BLOOD PRESSURE INCREASED [None]
  - DIARRHOEA [None]
  - DYSPEPSIA [None]
  - MYALGIA [None]
  - NAUSEA [None]
  - PARAESTHESIA [None]
